FAERS Safety Report 20447522 (Version 1)
Quarter: 2022Q1

REPORT INFORMATION
  Report Type: Report from Study
  Country: US (occurrence: US)
  Receive Date: 20220209
  Receipt Date: 20220209
  Transmission Date: 20220423
  Serious: No
  Sender: FDA-Public Use
  Company Number: US-HRARD-2021000470

PATIENT
  Age: 54 Year
  Sex: Female

DRUGS (2)
  1. LYSODREN [Suspect]
     Active Substance: MITOTANE
     Dosage: 1 TABLET IN THE MORNING, 2 TABLETS AT NOON, 2 TABLETS IN THE EVENING, AND 1 TABLET AT BEDTIME
     Route: 048
     Dates: start: 20201022
  2. ONDANSETRON [Concomitant]
     Active Substance: ONDANSETRON

REACTIONS (3)
  - Feeling abnormal [Recovering/Resolving]
  - Tremor [Recovered/Resolved]
  - Disturbance in attention [Recovered/Resolved]

NARRATIVE: CASE EVENT DATE: 20210501
